FAERS Safety Report 9840163 (Version 1)
Quarter: 2014Q1

REPORT INFORMATION
  Report Type: Report from Study
  Country: US (occurrence: US)
  Receive Date: 20140124
  Receipt Date: 20140124
  Transmission Date: 20141002
  Serious: Yes (Other)
  Sender: FDA-Public Use
  Company Number: US-ROCHE-1332998

PATIENT
  Age: 21 Year
  Sex: Female
  Weight: 73.1 kg

DRUGS (5)
  1. NUTROPIN AQ [Suspect]
     Indication: HYPOPITUITARISM
     Route: 058
     Dates: end: 20130523
  2. NUTROPIN AQ [Suspect]
     Route: 058
     Dates: start: 20130523
  3. LEVOTHYROXINE [Concomitant]
     Route: 048
  4. CELEXA (UNITED STATES) [Concomitant]
     Route: 048
  5. CONCERTA [Concomitant]
     Indication: ATTENTION DEFICIT/HYPERACTIVITY DISORDER
     Route: 048

REACTIONS (6)
  - Menstruation irregular [Unknown]
  - Migraine with aura [Unknown]
  - Insulin-like growth factor increased [Unknown]
  - Acne [Unknown]
  - Weight increased [Unknown]
  - Hyperhidrosis [Unknown]
